FAERS Safety Report 19389409 (Version 2)
Quarter: 2021Q3

REPORT INFORMATION
  Report Type: Spontaneous
  Country: US (occurrence: US)
  Receive Date: 20210608
  Receipt Date: 20210707
  Transmission Date: 20211014
  Serious: No
  Sender: FDA-Public Use
  Company Number: US-PFIZER INC-2021641365

PATIENT
  Age: 45 Year
  Sex: Female

DRUGS (1)
  1. TOZINAMERAN. [Suspect]
     Active Substance: TOZINAMERAN
     Indication: COVID-19 IMMUNISATION
     Dosage: DOSE NUMBER UNKNOWN, SINGLE

REACTIONS (1)
  - Diarrhoea [Unknown]
